FAERS Safety Report 5914892-8 (Version None)
Quarter: 2008Q4

REPORT INFORMATION
  Report Type: 
  Country: None (occurrence: None)
  Receive Date: 20081010
  Receipt Date: 20081003
  Transmission Date: 20090506
  Serious: Yes (Other)
  Sender: FDA-Public Use
  Company Number: PHHY2008NL23382

PATIENT
  Sex: Female
  Weight: 112 kg

DRUGS (3)
  1. DIOVAN HCT [Suspect]
     Indication: HYPERTENSION
     Dosage: 1 DF, QD
     Dates: start: 20040101
  2. ORGAMETRIL [Concomitant]
     Dosage: 1 DF, QD
     Dates: start: 20050201
  3. LUCRIN [Concomitant]
     Dosage: 1 DF, QD

REACTIONS (2)
  - MYALGIA [None]
  - TENDONITIS [None]
